FAERS Safety Report 5455827-4 (Version None)
Quarter: 2007Q3

REPORT INFORMATION
  Report Type: 
  Country: None (occurrence: None)
  Receive Date: 20070914
  Receipt Date: 20070914
  Transmission Date: 20080115
  Serious: Yes (Hospitalization)
  Sender: FDA-Public Use
  Company Number: None

PATIENT
  Sex: Female
  Weight: 127 kg

DRUGS (5)
  1. CYCLOPHOSPHAMIDE [Suspect]
     Dosage: 1770 MG
  2. DOXORUBICIN HYDROCHLORIDE [Suspect]
     Dosage: 118 MG
  3. PREDNISONE [Suspect]
     Dosage: 500 MG
  4. RITUXIMAB [Suspect]
     Dosage: 885 MG
  5. VINCRISTINE SULFATE [Suspect]
     Dosage: 2 MG

REACTIONS (2)
  - FATIGUE [None]
  - PNEUMONIA [None]
